FAERS Safety Report 9072370 (Version 1)
Quarter: 2013Q1

REPORT INFORMATION
  Report Type: Report from Study
  Country: US (occurrence: US)
  Receive Date: 20130129
  Receipt Date: 20130129
  Transmission Date: 20140127
  Serious: No
  Sender: FDA-Public Use
  Company Number: US-ABBOTT-12P-163-0938437-00

PATIENT
  Age: 25 None
  Sex: Female
  Weight: 60.84 kg

DRUGS (1)
  1. HUMIRA 40 MG/0.8 ML PEN [Suspect]
     Indication: CROHN^S DISEASE
     Dates: start: 201202

REACTIONS (8)
  - Skin disorder [Not Recovered/Not Resolved]
  - Skin disorder [Not Recovered/Not Resolved]
  - Skin disorder [Not Recovered/Not Resolved]
  - Pain of skin [Not Recovered/Not Resolved]
  - Crohn^s disease [Not Recovered/Not Resolved]
  - Eating disorder [Not Recovered/Not Resolved]
  - Weight increased [Not Recovered/Not Resolved]
  - Injection site pain [Not Recovered/Not Resolved]
